FAERS Safety Report 7724199-4 (Version None)
Quarter: 2011Q3

REPORT INFORMATION
  Report Type: 
  Country: None (occurrence: None)
  Receive Date: 20110829
  Receipt Date: 20110725
  Transmission Date: 20111222
  Serious: Yes (Hospitalization)
  Sender: FDA-Public Use
  Company Number: IND1-GB-2011-0030

PATIENT
  Age: 68 Year
  Sex: Male

DRUGS (1)
  1. INDOMETHACIN [Suspect]
     Indication: GOUT
     Dosage: 50 MG (50 MG,1 IN 1 D) ORAL
     Route: 048
     Dates: start: 20110601, end: 20110711

REACTIONS (4)
  - AGITATION [None]
  - ABNORMAL BEHAVIOUR [None]
  - AGGRESSION [None]
  - MANIA [None]
